FAERS Safety Report 17281838 (Version 1)
Quarter: 2020Q1

REPORT INFORMATION
  Report Type: Spontaneous
  Country: US (occurrence: US)
  Receive Date: 20191227
  Receipt Date: 20191227
  Transmission Date: 20200409
  Serious: No
  Sender: FDA-Public Use
  Company Number: None

PATIENT
  Age: 31 Year
  Sex: Female

DRUGS (1)
  1. BUPREMORPHINE/NALOXONE 8-2MG [Suspect]
     Active Substance: BUPRENORPHINE\NALOXONE
     Indication: DRUG DEPENDENCE
     Dosage: ?          OTHER DOSE:TAKE 3 TABS;?
     Route: 048

REACTIONS (3)
  - Headache [None]
  - Vomiting [None]
  - Nausea [None]
